FAERS Safety Report 14350139 (Version 3)
Quarter: 2019Q3

REPORT INFORMATION
  Report Type: Report from Study
  Country: HU (occurrence: HU)
  Receive Date: 20180104
  Receipt Date: 20190917
  Transmission Date: 20191004
  Serious: Yes (Hospitalization)
  Sender: FDA-Public Use
  Company Number: HU-ROCHE-1798931

PATIENT
  Age: 70 Year
  Sex: Male
  Weight: 84 kg

DRUGS (18)
  1. VEMURAFENIB. [Suspect]
     Active Substance: VEMURAFENIB
     Indication: MALIGNANT MELANOMA
     Dosage: MOST RECENT DOSE PRIOR TO ONSET OF CUTAN-SUBCUTAN METASTASIS OF MELANOMA MALIGNUM: 03/JUL/2016 (960M
     Route: 048
     Dates: start: 20150421
  2. CREMOR REFRIGERANS [Concomitant]
     Indication: DRY SKIN
     Route: 065
     Dates: start: 20120625
  3. CARBAMID [Concomitant]
     Indication: PALMOPLANTAR KERATODERMA
     Route: 065
     Dates: start: 201205
  4. ASPIRIN PROTECT [Concomitant]
     Active Substance: ASPIRIN
     Indication: ACUTE CORONARY SYNDROME
     Route: 065
     Dates: start: 20160426
  5. ALPRAZOLAM. [Concomitant]
     Active Substance: ALPRAZOLAM
     Indication: ANXIETY
     Route: 065
     Dates: start: 20160426
  6. KALDYUM [Concomitant]
     Active Substance: POTASSIUM CHLORIDE
     Indication: HYPERTENSION
     Route: 065
     Dates: start: 20160517
  7. VEMURAFENIB. [Suspect]
     Active Substance: VEMURAFENIB
     Dosage: FIRST DOSE RECEIVED IN ANTECEDENT STUDY, ANTECEDENT PROTOCOL: MO25515
     Route: 048
     Dates: start: 20120328
  8. BISOPROLOL [Concomitant]
     Active Substance: BISOPROLOL
     Indication: HYPERTONIA
  9. RAMIPRIL. [Concomitant]
     Active Substance: RAMIPRIL
     Indication: HYPERTONIA
     Route: 065
     Dates: start: 2008
  10. FUROSEMID [FUROSEMIDE] [Concomitant]
     Active Substance: FUROSEMIDE
     Indication: HYPERTENSION
     Route: 065
     Dates: start: 20160517
  11. ALPRAZOLAM. [Concomitant]
     Active Substance: ALPRAZOLAM
     Indication: ANXIETY
  12. ENOXAPARIN SODIUM. [Concomitant]
     Active Substance: ENOXAPARIN SODIUM
     Indication: ACUTE CORONARY SYNDROME
     Route: 065
     Dates: start: 20160426
  13. CLOPIDOGREL [Concomitant]
     Active Substance: CLOPIDOGREL BISULFATE
     Indication: ACUTE CORONARY SYNDROME
     Route: 065
     Dates: start: 20160426
  14. ATORVASTATIN [Concomitant]
     Active Substance: ATORVASTATIN
     Indication: HYPERLIPIDAEMIA
     Route: 065
     Dates: start: 20160426
  15. PANTOPRAZOLE [Concomitant]
     Active Substance: PANTOPRAZOLE
     Route: 065
     Dates: start: 20160517
  16. ELOCOM [Concomitant]
     Active Substance: MOMETASONE FUROATE
     Route: 065
     Dates: start: 20170808
  17. CREMOR REFRIGERANS [Concomitant]
     Route: 065
     Dates: start: 20110625
  18. HYDROCHLOROTHIAZID [Concomitant]
     Active Substance: HYDROCHLOROTHIAZIDE
     Indication: HYPERTENSION
     Route: 065
     Dates: start: 2008

REACTIONS (2)
  - Metastatic malignant melanoma [Recovered/Resolved]
  - Metastatic malignant melanoma [Recovered/Resolved]

NARRATIVE: CASE EVENT DATE: 20160704
